FAERS Safety Report 6151287-9 (Version None)
Quarter: 2009Q2

REPORT INFORMATION
  Report Type: 
  Country: None (occurrence: None)
  Receive Date: 20090410
  Receipt Date: 20090406
  Transmission Date: 20091009
  Serious: Yes (Other)
  Sender: FDA-Public Use
  Company Number: GB-ASTRAZENECA-2009GB00862

PATIENT
  Age: 50 Year
  Sex: Female
  Weight: 92.4 kg

DRUGS (1)
  1. SYMBICORT [Suspect]
     Dosage: DOSE REPORTED AS 200 UG
     Route: 055
     Dates: start: 20080408, end: 20090317

REACTIONS (1)
  - TOOTH DISORDER [None]
